FAERS Safety Report 7251644-3 (Version None)
Quarter: 2011Q1

REPORT INFORMATION
  Report Type: 
  Country: None (occurrence: None)
  Receive Date: 20110128
  Receipt Date: 20110125
  Transmission Date: 20110831
  Serious: Yes (Other)
  Sender: FDA-Public Use
  Company Number: US-PFIZER INC-2011018140

PATIENT
  Sex: Female
  Weight: 61.224 kg

DRUGS (4)
  1. TOVIAZ [Suspect]
     Dosage: 8 MG, 1X/DAY
     Dates: start: 20110121
  2. ACETAMINOPHEN W/ CODEINE [Concomitant]
     Dosage: UNK
  3. TOVIAZ [Suspect]
     Indication: URINARY INCONTINENCE
     Dosage: 4 MG, DAILY
     Route: 048
  4. MALIC ACID [Concomitant]
     Dosage: UNK

REACTIONS (6)
  - UNEVALUABLE EVENT [None]
  - NAUSEA [None]
  - FLUSHING [None]
  - CHEST DISCOMFORT [None]
  - DIZZINESS [None]
  - DRUG INEFFECTIVE [None]
